FAERS Safety Report 9376013 (Version 1)
Quarter: 2013Q2

REPORT INFORMATION
  Report Type: Spontaneous
  Country: MX (occurrence: MX)
  Receive Date: 20130629
  Receipt Date: 20130629
  Transmission Date: 20140414
  Serious: Yes (Other)
  Sender: FDA-Public Use
  Company Number: MX-B.I. PHARMACEUTICALS,INC./RIDGEFIELD-2013-MX-00215MX

PATIENT
  Age: 70 Year
  Sex: Female
  Weight: 78 kg

DRUGS (6)
  1. TRAJENTA [Suspect]
     Indication: TYPE 2 DIABETES MELLITUS
     Dosage: 5 MG
     Route: 048
  2. TRAYENTA DUO [Suspect]
     Indication: TYPE 2 DIABETES MELLITUS
     Dosage: DAILY DOSE: 2.5MG/850MG 1 EACH 12 HOURS
     Route: 048
     Dates: start: 201303, end: 201303
  3. CONCOR [Concomitant]
     Indication: TACHYCARDIA
     Dosage: 5 MG
     Route: 048
     Dates: start: 2011
  4. ASA [Concomitant]
     Indication: CARDIOVASCULAR EVENT PROPHYLAXIS
     Dosage: 1 TABLET DAILY
     Route: 048
  5. METFORMINE [Concomitant]
     Indication: TYPE 2 DIABETES MELLITUS
     Dosage: 850 MG EACH 12 HOURS
     Route: 048
  6. LISINOPRIL [Concomitant]
     Indication: HYPERTENSION
     Dosage: 1 TA DAILY
     Route: 048
     Dates: end: 20130620

REACTIONS (2)
  - Soft tissue neoplasm [Not Recovered/Not Resolved]
  - Nausea [Recovered/Resolved]
